FAERS Safety Report 7640556 (Version 5)
Quarter: 2012Q4

REPORT INFORMATION
  Report Type: Report from Study
  Country: US (occurrence: US)
  Receive Date: 20101026
  Receipt Date: 20121101
  Transmission Date: 20130627
  Serious: Yes (Hospitalization)
  Sender: FDA-Public Use
  Company Number: US-BRISTOL-MYERS SQUIBB COMPANY-15346687

PATIENT
  Age: 64 Year
  Sex: Female
  Weight: 169 kg

DRUGS (11)
  1. CARBOPLATIN [Suspect]
     Indication: NON-SMALL CELL LUNG CANCER
     Dosage: 30sep10 dose:713mg,last dose
6DF:6AUC
     Route: 042
     Dates: start: 20100721
  2. PEMETREXED DISODIUM [Suspect]
     Indication: NON-SMALL CELL LUNG CANCER
     Dosage: 30sep10 dose:514mg,last dose
Vial
     Route: 042
     Dates: start: 20100721
  3. AMLODIPINE [Concomitant]
  4. MIRAPEX [Concomitant]
  5. FOLIC ACID [Concomitant]
  6. METAMUCIL [Concomitant]
  7. COLACE [Concomitant]
  8. AVAPRO [Concomitant]
  9. SENOKOT [Concomitant]
  10. ZOLOFT [Concomitant]
  11. VITAMIN B12 [Concomitant]
     Dates: start: 20100719

REACTIONS (2)
  - Syncope [Recovered/Resolved]
  - Dehydration [Recovered/Resolved]
